FAERS Safety Report 10681829 (Version 1)
Quarter: 2014Q4

REPORT INFORMATION
  Report Type: Spontaneous
  Country: US (occurrence: None)
  Receive Date: 20141229
  Receipt Date: 20141229
  Transmission Date: 20150529
  Serious: Yes (Other)
  Sender: FDA-Public Use
  Company Number: None

PATIENT
  Age: 57 Year
  Sex: Female
  Weight: 68.04 kg

DRUGS (1)
  1. POLYMYXIN B SULFATE AND TRIMETHOPRIM [Suspect]
     Active Substance: POLYMYXIN B SULFATE\TRIMETHOPRIM SULFATE
     Indication: CONJUNCTIVITIS
     Route: 047
     Dates: start: 20141215, end: 20141222

REACTIONS (8)
  - Rash [None]
  - Skin exfoliation [None]
  - Pain [None]
  - Eye swelling [None]
  - Erythema [None]
  - Periorbital haemorrhage [None]
  - Fear [None]
  - Vision blurred [None]

NARRATIVE: CASE EVENT DATE: 20141215
